FAERS Safety Report 9969160 (Version 2)
Quarter: 2014Q1

REPORT INFORMATION
  Report Type: Spontaneous
  Country: BR (occurrence: BR)
  Receive Date: 20140306
  Receipt Date: 20140331
  Transmission Date: 20141002
  Serious: Yes (Death, Congenital Anomaly)
  Sender: FDA-Public Use
  Company Number: BR-BIOGENIDEC-2014BI020389

PATIENT
  Sex: 0

DRUGS (3)
  1. AVONEX [Suspect]
     Indication: MATERNAL EXPOSURE TIMING UNSPECIFIED
     Route: 064
     Dates: start: 20120614, end: 20131026
  2. VITAMIN D [Concomitant]
  3. MATERNA [Concomitant]

REACTIONS (1)
  - Cleft lip and palate [Fatal]
